FAERS Safety Report 14587648 (Version 1)
Quarter: 2018Q1

REPORT INFORMATION
  Report Type: Spontaneous
  Country: US (occurrence: US)
  Receive Date: 20180301
  Receipt Date: 20180301
  Transmission Date: 20180509
  Serious: No
  Sender: FDA-Public Use
  Company Number: US-BRACCO DIAGNOSTICS, INC.-2017US04129

PATIENT

DRUGS (1)
  1. ISOVUE 370 [Suspect]
     Active Substance: IOPAMIDOL
     Indication: CATHETERISATION CARDIAC
     Dosage: 190 ML, SINGLE

REACTIONS (2)
  - No adverse event [Unknown]
  - Overdose [Unknown]
